FAERS Safety Report 5074096-0 (Version None)
Quarter: 2006Q3

REPORT INFORMATION
  Report Type: 
  Country: None (occurrence: None)
  Receive Date: 20060808
  Receipt Date: 20060519
  Transmission Date: 20061208
  Serious: Yes (Hospitalization, Disabling)
  Sender: FDA-Public Use
  Company Number: US-SANOFI-SYNTHELABO-A03200603217

PATIENT
  Sex: Female

DRUGS (14)
  1. PRAVACHOL [Concomitant]
     Dosage: UNK
     Route: 048
  2. TOPROL-XL [Concomitant]
     Route: 048
  3. PAXIL [Concomitant]
     Route: 048
  4. ALTACE [Concomitant]
     Dosage: UNK
     Route: 048
  5. NITROQUICK [Concomitant]
     Dosage: UNK
     Route: 060
  6. AMBIEN [Suspect]
     Indication: INSOMNIA
     Route: 048
  7. ASPIRIN [Concomitant]
     Route: 048
  8. ALTACE [Concomitant]
     Route: 048
  9. PHENERGAN HCL [Concomitant]
     Route: 065
  10. NITROGLYCERIN [Concomitant]
     Dosage: UNK
     Route: 062
  11. ZOCOR [Concomitant]
     Route: 048
  12. NITROGLYCERIN [Concomitant]
     Route: 060
  13. LIDOCAINE [Concomitant]
     Dosage: UNK
     Route: 062
  14. PLAVIX [Concomitant]
     Route: 048

REACTIONS (19)
  - AMNESIA [None]
  - ASTHENIA [None]
  - CHEST PAIN [None]
  - CONFUSIONAL STATE [None]
  - DIARRHOEA [None]
  - DIZZINESS [None]
  - DYSPNOEA [None]
  - FALL [None]
  - FATIGUE [None]
  - HYPERSENSITIVITY [None]
  - LABYRINTHITIS [None]
  - NAUSEA [None]
  - PAIN [None]
  - SLEEP WALKING [None]
  - SYNCOPE [None]
  - UPPER LIMB FRACTURE [None]
  - VERTIGO [None]
  - VIRAL LABYRINTHITIS [None]
  - VOMITING [None]
